FAERS Safety Report 24108413 (Version 2)
Quarter: 2024Q3

REPORT INFORMATION
  Report Type: Spontaneous
  Country: CN (occurrence: CN)
  Receive Date: 20240718
  Receipt Date: 20240725
  Transmission Date: 20241017
  Serious: Yes (Other)
  Sender: ROCHE
  Company Number: CN-BoehringerIngelheim-2024-BI-039750

PATIENT
  Age: 70 Year
  Sex: Male
  Weight: 65.0 kg

DRUGS (2)
  1. ALTEPLASE [Suspect]
     Active Substance: ALTEPLASE
     Indication: Cerebral infarction
     Route: 042
     Dates: start: 20240711, end: 20240711
  2. ALTEPLASE [Suspect]
     Active Substance: ALTEPLASE
     Route: 042
     Dates: start: 20240711, end: 20240711

REACTIONS (3)
  - Chromaturia [Recovered/Resolved]
  - Gingival bleeding [Recovered/Resolved]
  - Urethral haemorrhage [Recovered/Resolved]

NARRATIVE: CASE EVENT DATE: 20240711
